FAERS Safety Report 7115442-3 (Version None)
Quarter: 2010Q4

REPORT INFORMATION
  Report Type: 
  Country: None (occurrence: None)
  Receive Date: 20101122
  Receipt Date: 20100219
  Transmission Date: 20110411
  Serious: No
  Sender: FDA-Public Use
  Company Number: US-BAYER-200930838NA

PATIENT
  Age: 54 Year
  Sex: Female

DRUGS (1)
  1. CLIMARA PRO [Suspect]
     Indication: HORMONE REPLACEMENT THERAPY
     Dosage: AS USED DOSE: 0.045/0.015 MG
     Route: 062

REACTIONS (4)
  - ACNE [None]
  - APPLICATION SITE RASH [None]
  - HOT FLUSH [None]
  - INSOMNIA [None]
